FAERS Safety Report 4751604-8 (Version None)
Quarter: 2005Q3

REPORT INFORMATION
  Report Type: 
  Country: None (occurrence: None)
  Receive Date: 20050822
  Receipt Date: 20050817
  Transmission Date: 20060218
  Serious: Yes (Other)
  Sender: FDA-Public Use
  Company Number: THQ2005A00760

PATIENT
  Age: 33 Year

DRUGS (1)
  1. ZOTON FASTAB (LANSOPRAZOLE) TABLETS) [Suspect]
     Indication: ENDOSCOPY
     Dosage: (30 MG) PER ORAL
     Route: 048
     Dates: start: 20050802, end: 20050802

REACTIONS (5)
  - ABDOMINAL PAIN [None]
  - CHEST PAIN [None]
  - EYE PAIN [None]
  - HYPERHIDROSIS [None]
  - VISION BLURRED [None]
